FAERS Safety Report 10902462 (Version 2)
Quarter: 2015Q1

REPORT INFORMATION
  Report Type: Spontaneous
  Country: JP (occurrence: JP)
  Receive Date: 20150310
  Receipt Date: 20150313
  Transmission Date: 20150721
  Serious: Yes (Other)
  Sender: FDA-Public Use
  Company Number: JP-SANTEN-10112014

PATIENT

DRUGS (1)
  1. CRAVIT [Suspect]
     Active Substance: LEVOFLOXACIN
     Indication: CHALAZION
     Dosage: 1 GTT, SINGLE, OD
     Route: 047
     Dates: start: 20140904, end: 20140904

REACTIONS (1)
  - Anaphylactic reaction [Recovered/Resolved]

NARRATIVE: CASE EVENT DATE: 20140904
